FAERS Safety Report 24455090 (Version 2)
Quarter: 2024Q4

REPORT INFORMATION
  Report Type: Report from Study
  Country: IT (occurrence: IT)
  Receive Date: 20241017
  Receipt Date: 20241018
  Transmission Date: 20250115
  Serious: No
  Sender: ROCHE
  Company Number: IT-ROCHE-3481739

PATIENT

DRUGS (15)
  1. RITUXIMAB [Interacting]
     Active Substance: RITUXIMAB
     Indication: B-cell lymphoma
     Route: 065
  2. BENDAMUSTINE [Interacting]
     Active Substance: BENDAMUSTINE
     Indication: B-cell lymphoma
     Route: 065
  3. CYCLOPHOSPHAMIDE [Interacting]
     Active Substance: CYCLOPHOSPHAMIDE
     Indication: B-cell lymphoma
     Route: 065
  4. PREDNISONE [Interacting]
     Active Substance: PREDNISONE
     Indication: B-cell lymphoma
     Route: 065
  5. VINCRISTINE [Interacting]
     Active Substance: VINCRISTINE
     Indication: B-cell lymphoma
     Route: 065
  6. ETOPOSIDE [Interacting]
     Active Substance: ETOPOSIDE
     Indication: B-cell lymphoma
     Route: 065
  7. DOXORUBICIN [Interacting]
     Active Substance: DOXORUBICIN
     Indication: B-cell lymphoma
     Route: 065
  8. CYTARABINE [Interacting]
     Active Substance: CYTARABINE
     Indication: B-cell lymphoma
     Route: 065
  9. FLUDARABINE [Interacting]
     Active Substance: FLUDARABINE PHOSPHATE
     Indication: B-cell lymphoma
     Route: 065
  10. MITOXANTRONE [Interacting]
     Active Substance: MITOXANTRONE HYDROCHLORIDE
     Indication: B-cell lymphoma
     Route: 065
  11. ELASOMERAN [Interacting]
     Active Substance: ELASOMERAN
     Indication: COVID-19 prophylaxis
     Dosage: FIRST DOSE IN MAR/2021, FOLLOWED BY A SECOND DOSE 28 DAYS LATER. RECEIVED A THIRD VACCINE DOSE BETWE
     Route: 065
  12. METHOTREXATE [Interacting]
     Active Substance: METHOTREXATE
     Indication: B-cell lymphoma
     Route: 065
  13. PREDNISOLONE [Interacting]
     Active Substance: PREDNISOLONE
     Indication: B-cell lymphoma
     Route: 065
  14. DEXAMETHASONE [Interacting]
     Active Substance: DEXAMETHASONE
     Indication: B-cell lymphoma
     Route: 065
  15. OXALIPLATIN [Interacting]
     Active Substance: OXALIPLATIN
     Indication: B-cell lymphoma
     Route: 065

REACTIONS (2)
  - Humoral immune defect [Unknown]
  - Vaccine interaction [Unknown]
